FAERS Safety Report 13138951 (Version 1)
Quarter: 2017Q1

REPORT INFORMATION
  Report Type: Spontaneous
  Country: GB (occurrence: GB)
  Receive Date: 20170123
  Receipt Date: 20170123
  Transmission Date: 20170428
  Serious: Yes (Disabling, Other)
  Sender: FDA-Public Use
  Company Number: GB-TEVA-729464ACC

PATIENT
  Age: 63 Year
  Sex: Male
  Weight: 98 kg

DRUGS (13)
  1. ACTAVIS UK PREDNISOLONE [Suspect]
     Active Substance: PREDNISOLONE
     Indication: PSORIATIC ARTHROPATHY
     Dosage: 3 WEEKS AT 15MG; 3 WEEKS AT 10MG; NOW 3 WEEKS AT 5MG
     Route: 048
     Dates: start: 20161118, end: 20161209
  2. ACTAVIS UK PREDNISOLONE [Suspect]
     Active Substance: PREDNISOLONE
     Indication: PSORIATIC ARTHROPATHY
     Dosage: 3 WEEKS AT  15MG; 3 WEEKS AT 10MG; NOW 3 WEEKS AT 5MG
     Route: 048
     Dates: start: 20161230
  3. CODEINE [Concomitant]
     Active Substance: CODEINE
     Indication: ANALGESIC THERAPY
     Dosage: OCCASIONAL PAIN RELIEF.
  4. LANSOPRAZOLE. [Concomitant]
     Active Substance: LANSOPRAZOLE
     Dosage: 15 MILLIGRAM DAILY;
  5. METHOTREXATE. [Concomitant]
     Active Substance: METHOTREXATE
  6. TRAMADOL. [Concomitant]
     Active Substance: TRAMADOL
     Indication: ANALGESIC THERAPY
     Dosage: 50 OR 100MG, OCCASIONAL PAIN RELIEF.
  7. USTEKINUMAB [Concomitant]
     Active Substance: USTEKINUMAB
     Dates: start: 20160914
  8. ATORVASTATIN [Concomitant]
     Active Substance: ATORVASTATIN
     Dosage: 40 MILLIGRAM DAILY;
  9. ACTAVIS UK PREDNISOLONE [Suspect]
     Active Substance: PREDNISOLONE
     Indication: PSORIATIC ARTHROPATHY
     Dosage: 3 WEEKS AT 15MG; 3 WEEKS AT 10MG; NOW 3 WEEKS AT 5MG
     Route: 048
     Dates: start: 20161209, end: 20161230
  10. CLOPIDOGREL [Concomitant]
     Active Substance: CLOPIDOGREL BISULFATE
     Dosage: 75 MILLIGRAM DAILY;
  11. TAMSULOSIN [Concomitant]
     Active Substance: TAMSULOSIN
     Dosage: 400 MILLIGRAM DAILY;
  12. ZOPICLONE [Concomitant]
     Active Substance: ZOPICLONE
     Dosage: OCCASIONAL USE.
  13. FOLIC ACID. [Concomitant]
     Active Substance: FOLIC ACID

REACTIONS (2)
  - Weight increased [Not Recovered/Not Resolved]
  - Agitated depression [Not Recovered/Not Resolved]

NARRATIVE: CASE EVENT DATE: 20161210
